FAERS Safety Report 11005053 (Version 1)
Quarter: 2015Q2

REPORT INFORMATION
  Report Type: Spontaneous
  Country: US (occurrence: None)
  Receive Date: 20150408
  Receipt Date: 20150408
  Transmission Date: 20150821
  Serious: No
  Sender: FDA-Public Use
  Company Number: None

PATIENT
  Age: 74 Year
  Sex: Female

DRUGS (1)
  1. ATORVASTATIN [Suspect]
     Active Substance: ATORVASTATIN
     Indication: HYPERLIPIDAEMIA
     Dates: start: 20120222, end: 20130408

REACTIONS (4)
  - Alanine aminotransferase increased [None]
  - Autoimmune hepatitis [None]
  - Aspartate aminotransferase increased [None]
  - Hepatic fibrosis [None]

NARRATIVE: CASE EVENT DATE: 20130408
